FAERS Safety Report 8861831 (Version 1)
Quarter: 2012Q4

REPORT INFORMATION
  Report Type: Spontaneous
  Country: JP (occurrence: None)
  Receive Date: 20121024
  Receipt Date: 20121024
  Transmission Date: 20130627
  Serious: Yes (Hospitalization)
  Sender: FDA-Public Use
  Company Number: NSR_00691_2012

PATIENT
  Age: 15 Year
  Sex: Male

DRUGS (7)
  1. LAMOTRIGINE [Suspect]
     Dosage: alternate days
     Route: 048
  2. LAMOTRIGINE [Suspect]
     Route: 048
  3. LAMOTRIGINE [Suspect]
     Route: 048
  4. ZONISAMIDE [Concomitant]
  5. CLONAZEPAM [Concomitant]
  6. PHENOBARBITAL [Concomitant]
  7. GABAPENTIN [Concomitant]

REACTIONS (4)
  - Inappropriate affect [None]
  - Abnormal behaviour [None]
  - Eye movement disorder [None]
  - Depressed level of consciousness [None]
